FAERS Safety Report 18707384 (Version 1)
Quarter: 2021Q1

REPORT INFORMATION
  Report Type: Spontaneous
  Country: US (occurrence: US)
  Receive Date: 20210106
  Receipt Date: 20210106
  Transmission Date: 20210419
  Serious: No
  Sender: FDA-Public Use
  Company Number: US-PERRIGO-20US003695

PATIENT
  Age: 66 Year
  Sex: Female
  Weight: 68.03 kg

DRUGS (2)
  1. MIGRAINE FORMULA [Suspect]
     Active Substance: ACETAMINOPHEN\ASPIRIN\CAFFEINE
     Indication: MIGRAINE
     Dosage: 2 TABLETS, 1 TO 2 TIMES DAILY, PRN
     Route: 048
     Dates: start: 2019
  2. MIGRAINE FORMULA [Suspect]
     Active Substance: ACETAMINOPHEN\ASPIRIN\CAFFEINE
     Indication: ARTHRALGIA
     Dosage: 2 TABLETS, 1 TO 3 TIMES DAILY, PRN
     Route: 048
     Dates: end: 2019

REACTIONS (3)
  - Drug effective for unapproved indication [Unknown]
  - Expired product administered [Unknown]
  - Overdose [Recovered/Resolved]

NARRATIVE: CASE EVENT DATE: 201908
